FAERS Safety Report 12613509 (Version 1)
Quarter: 2016Q3

REPORT INFORMATION
  Report Type: Spontaneous
  Country: US (occurrence: US)
  Receive Date: 20160802
  Receipt Date: 20160802
  Transmission Date: 20161109
  Serious: Yes (Other)
  Sender: FDA-Public Use
  Company Number: US-LUPIN PHARMACEUTICALS INC.-2016-03330

PATIENT
  Age: 16 Year
  Sex: Male

DRUGS (1)
  1. LEVETIRACETAM TABLETS USP 250MG [Suspect]
     Active Substance: LEVETIRACETAM
     Indication: SEIZURE
     Route: 065

REACTIONS (6)
  - Tremor [Unknown]
  - Pruritus [Unknown]
  - Urticaria [Unknown]
  - Seizure [Unknown]
  - Aggression [Unknown]
  - Drug ineffective [Unknown]
